FAERS Safety Report 9401046 (Version 1)
Quarter: 2013Q3

REPORT INFORMATION
  Report Type: Spontaneous
  Country: IT (occurrence: IT)
  Receive Date: 20130715
  Receipt Date: 20130715
  Transmission Date: 20140515
  Serious: Yes (Other)
  Sender: FDA-Public Use
  Company Number: IT-BRISTOL-MYERS SQUIBB COMPANY-19089093

PATIENT
  Age: 75 Year
  Sex: Male

DRUGS (8)
  1. ERBITUX SOLN FOR INF [Suspect]
     Indication: RECTAL CANCER
     Route: 042
     Dates: start: 20130603, end: 20130603
  2. IRINOTECAN [Concomitant]
     Dosage: 1DF=20MG/ML.100MG
  3. FLUOROURACIL [Concomitant]
  4. TRIMETRON [Concomitant]
     Dosage: 1DF=10MG/1ML.INFUSION
     Route: 042
  5. ATROPINE SULFATE [Concomitant]
  6. LEDERFOLINE [Concomitant]
  7. ZOFRAN [Concomitant]
     Dosage: 1DF=8MG/4ML.
  8. LIMICAN [Concomitant]
     Dosage: 1DF=50MG/2ML.

REACTIONS (6)
  - Gastrointestinal haemorrhage [Unknown]
  - Deep vein thrombosis [Recovering/Resolving]
  - Presyncope [Recovering/Resolving]
  - Diarrhoea [Recovering/Resolving]
  - Abdominal pain [Recovering/Resolving]
  - Vomiting [Recovering/Resolving]
